FAERS Safety Report 17151367 (Version 1)
Quarter: 2019Q4

REPORT INFORMATION
  Report Type: Spontaneous
  Country: US (occurrence: US)
  Receive Date: 20191213
  Receipt Date: 20191213
  Transmission Date: 20200122
  Serious: No
  Sender: FDA-Public Use
  Company Number: US-MYLANLABS-2019M1119754

PATIENT
  Sex: Female
  Weight: 95.25 kg

DRUGS (6)
  1. DULOXETINE. [Suspect]
     Active Substance: DULOXETINE
     Indication: FIBROMYALGIA
     Dosage: 30 MG; TAKES 1 IN MORNING AND 2 AT NIGHT BY MOUTH
     Route: 048
  2. FUROSEMIDE. [Suspect]
     Active Substance: FUROSEMIDE
     Indication: JOINT SWELLING
     Dosage: ONCE A DAY
     Route: 048
     Dates: start: 20191125
  3. FUROSEMIDE. [Suspect]
     Active Substance: FUROSEMIDE
     Indication: OEDEMA
     Dosage: 20 MG ONCE A DAY BY MOUTH
     Route: 048
     Dates: start: 20190925
  4. TOPIRAMATE. [Suspect]
     Active Substance: TOPIRAMATE
     Indication: FIBROMYALGIA
     Dosage: 100 MG 1 BY MOUTH TWICE A DAY
     Route: 048
  5. EDRONAX [Suspect]
     Active Substance: REBOXETINE MESYLATE
     Indication: FIBROMYALGIA
     Dosage: 4 MG BY MOUTH SHE THINKS IT WAS ONCE IN MORNING AND ONCE IN LATE AFTERNOON
     Route: 048
  6. NEURONTIN [Suspect]
     Active Substance: GABAPENTIN
     Indication: FIBROMYALGIA
     Dosage: 300 MG AT NIGHT; 100 MG IN MORNING

REACTIONS (2)
  - Weight increased [Unknown]
  - Fall [Unknown]
